FAERS Safety Report 24791146 (Version 5)
Quarter: 2025Q2

REPORT INFORMATION
  Report Type: Report from Study
  Country: US (occurrence: US)
  Receive Date: 20241230
  Receipt Date: 20250505
  Transmission Date: 20250717
  Serious: Yes (Hospitalization, Other)
  Sender: ABBVIE
  Company Number: US-ABBVIE-6063448

PATIENT
  Age: 19 Year
  Sex: Male
  Weight: 52.616 kg

DRUGS (1)
  1. SKYRIZI [Suspect]
     Active Substance: RISANKIZUMAB-RZAA
     Indication: Crohn^s disease
     Route: 042
     Dates: start: 20241001, end: 20241001

REACTIONS (4)
  - Gastrointestinal obstruction [Unknown]
  - Abdominal pain upper [Recovered/Resolved]
  - Foreign body in gastrointestinal tract [Not Recovered/Not Resolved]
  - Ileal stenosis [Recovering/Resolving]

NARRATIVE: CASE EVENT DATE: 20241101
